FAERS Safety Report 8026932 (Version 2)
Quarter: 2012Q4

REPORT INFORMATION
  Report Type: Report from Study
  Country: TR (occurrence: TR)
  Receive Date: 20110708
  Receipt Date: 20121119
  Transmission Date: 20130627
  Serious: Yes (Death, Hospitalization)
  Sender: FDA-Public Use
  Company Number: TR-CELGENEUS-161-C5013-11063994

PATIENT
  Age: 62 Year
  Sex: Female

DRUGS (7)
  1. REVLIMID [Suspect]
     Indication: MYELOFIBROSIS
     Dosage: 10 Milligram
     Route: 048
     Dates: end: 20110101
  2. ARA-C [Concomitant]
     Indication: DRUG USE FOR UNKNOWN INDICATION
     Route: 065
     Dates: start: 20101227
  3. IDAMYCIN [Concomitant]
     Indication: DRUG USE FOR UNKNOWN INDICATION
     Route: 065
     Dates: start: 20101227
  4. NORODOL [Concomitant]
     Indication: DELIRIUM
     Dosage: 20 Drops
     Route: 065
  5. PLATELET [Concomitant]
     Indication: PLATELET COUNT LOW
     Route: 065
  6. RED BLOOD CELLS [Concomitant]
     Indication: HEMOGLOBIN LOW
     Route: 065
  7. OXYGEN [Concomitant]
     Indication: DRUG USE FOR UNKNOWN INDICATION
     Route: 065

REACTIONS (3)
  - Myelofibrosis [Fatal]
  - Febrile neutropenia [Fatal]
  - Pneumonia [Fatal]
